FAERS Safety Report 7811158-6 (Version None)
Quarter: 2011Q4

REPORT INFORMATION
  Report Type: 
  Country: None (occurrence: None)
  Receive Date: 20111013
  Receipt Date: 20111007
  Transmission Date: 20120403
  Serious: Yes (Other)
  Sender: FDA-Public Use
  Company Number: PHHY2011ZA89862

PATIENT
  Sex: Male

DRUGS (2)
  1. CRESTOR [Concomitant]
     Dosage: 10 MG, UNK
     Dates: start: 20110917
  2. EXFORGE [Suspect]
     Dosage: 10/160 MG (AMLODIPINE 10, VALSARTAN 160), UNK
     Dates: start: 20110917, end: 20111004

REACTIONS (7)
  - ERECTILE DYSFUNCTION [None]
  - SWELLING [None]
  - BACK PAIN [None]
  - MALAISE [None]
  - ARTHRALGIA [None]
  - PRURITUS [None]
  - MUSCULOSKELETAL PAIN [None]
